FAERS Safety Report 5891982-X (Version None)
Quarter: 2008Q3

REPORT INFORMATION
  Report Type: 
  Country: None (occurrence: None)
  Receive Date: 20080922
  Receipt Date: 20080910
  Transmission Date: 20090109
  Serious: Yes (Other)
  Sender: FDA-Public Use
  Company Number: FR-PFIZER INC-2008077268

PATIENT
  Sex: Female

DRUGS (4)
  1. GABAPENTIN [Suspect]
     Indication: NEURALGIA
  2. RISPERIDONE [Interacting]
  3. TRIMEPRAZINE TAB [Interacting]
     Dosage: TEXT:3 DROPS
     Dates: start: 20080909
  4. BROMAZEPAM [Concomitant]

REACTIONS (4)
  - AGITATION [None]
  - DRUG INTERACTION [None]
  - ERYTHEMA [None]
  - MYALGIA [None]
